FAERS Safety Report 21703310 (Version 4)
Quarter: 2023Q2

REPORT INFORMATION
  Report Type: Spontaneous
  Country: US (occurrence: US)
  Receive Date: 20221209
  Receipt Date: 20230403
  Transmission Date: 20230722
  Serious: Yes (Hospitalization, Disabling, Other)
  Sender: FDA-Public Use
  Company Number: US-SA-SAC20221208000142

PATIENT
  Age: 80 Year
  Sex: Male
  Weight: 104.2 kg

DRUGS (16)
  1. DUPIXENT [Suspect]
     Active Substance: DUPILUMAB
     Indication: Asthma
     Dosage: 300 MG, QOW
     Route: 058
     Dates: start: 20220331, end: 20221130
  2. ELIQUIS [Concomitant]
     Active Substance: APIXABAN
     Dosage: 1 DF, BID
     Route: 048
  3. SYMBICORT [Concomitant]
     Active Substance: BUDESONIDE\FORMOTEROL FUMARATE DIHYDRATE
     Dosage: 2 DF, BID
     Route: 055
  4. PROSCAR [Concomitant]
     Active Substance: FINASTERIDE
     Dosage: 1 DF, QD
     Route: 048
  5. FLOVENT [Concomitant]
     Active Substance: FLUTICASONE PROPIONATE
     Dosage: 2 DF, BID
  6. LASIX [Concomitant]
     Active Substance: FUROSEMIDE
     Dosage: UNK
     Route: 048
  7. GABAPENTIN [Concomitant]
     Active Substance: GABAPENTIN
     Dosage: 1 DF, BID
     Route: 048
  8. GABAPENTIN [Concomitant]
     Active Substance: GABAPENTIN
     Dosage: 1 DF, QD
     Route: 048
  9. LUPRON [Concomitant]
     Active Substance: LEUPROLIDE ACETATE
     Dosage: UNK, Q6M
     Route: 030
  10. MONTELUKAST [Concomitant]
     Active Substance: MONTELUKAST SODIUM
     Dosage: 1 DF, QD
     Route: 048
  11. NALOXONE [Concomitant]
     Active Substance: NALOXONE
     Dosage: 0.1 ML
     Route: 045
  12. POTASSIUM CHLORIDE [Concomitant]
     Active Substance: POTASSIUM CHLORIDE
     Dosage: 1 DF, QD
     Route: 048
  13. FLOMAX [Concomitant]
     Active Substance: TAMSULOSIN HYDROCHLORIDE
     Dosage: 1 DF, QD
     Route: 048
  14. LEVOCETIRIZINE [Concomitant]
     Active Substance: LEVOCETIRIZINE
     Dosage: UNK
     Route: 048
  15. TUSSIONEX PENNKINETIC [Concomitant]
     Active Substance: CHLORPHENIRAMINE\HYDROCODONE
     Dosage: 5 ML, BID
     Route: 048
  16. ONDANSETRON [Concomitant]
     Active Substance: ONDANSETRON
     Dosage: 4 MG
     Dates: start: 20221128

REACTIONS (8)
  - Fall [Recovering/Resolving]
  - Spinal compression fracture [Recovering/Resolving]
  - Hypoxia [Unknown]
  - Atrial fibrillation [Unknown]
  - Pulmonary congestion [Unknown]
  - Thoracic vertebral fracture [Unknown]
  - Fall [Unknown]
  - Back pain [Unknown]
